FAERS Safety Report 7279124-X (Version None)
Quarter: 2011Q1

REPORT INFORMATION
  Report Type: 
  Country: None (occurrence: None)
  Receive Date: 20110207
  Receipt Date: 20110127
  Transmission Date: 20110831
  Serious: Yes (Death)
  Sender: FDA-Public Use
  Company Number: KR-CELGENEUS-286-C5013-11011889

PATIENT
  Sex: Male
  Weight: 68.3 kg

DRUGS (14)
  1. DEXAMETHASONE [Suspect]
     Indication: MULTIPLE MYELOMA
     Route: 065
     Dates: start: 20100520
  2. MEGESTROL ACETATE [Concomitant]
     Route: 048
     Dates: start: 20101104, end: 20110118
  3. CC-5013 [Suspect]
     Indication: MULTIPLE MYELOMA
     Route: 048
     Dates: start: 20100520
  4. ASPIRIN [Concomitant]
     Route: 048
     Dates: start: 20100520, end: 20110118
  5. CC-5013 [Suspect]
     Route: 048
     Dates: start: 20101230, end: 20110118
  6. ATENOLOL [Concomitant]
     Indication: HYPERTENSION
     Route: 048
     Dates: start: 20100224, end: 20110118
  7. OXYCONTIN [Concomitant]
     Route: 048
     Dates: start: 20100530, end: 20110118
  8. XATRAL XL [Concomitant]
     Route: 048
     Dates: start: 20100224, end: 20110118
  9. LASIX [Concomitant]
     Indication: HYPERTENSION
     Route: 048
     Dates: start: 20100402, end: 20110118
  10. DEXAMETHASONE [Suspect]
     Route: 065
     Dates: start: 20101230, end: 20110118
  11. IRCODON [Concomitant]
     Route: 048
     Dates: start: 20100812, end: 20110118
  12. ALMAGEL [Concomitant]
     Indication: PROPHYLAXIS AGAINST GASTROINTESTINAL ULCER
     Route: 048
     Dates: start: 20100527, end: 20110118
  13. PROSCAR [Concomitant]
     Route: 048
     Dates: start: 20100224, end: 20110118
  14. ENAFON [Concomitant]
     Route: 048
     Dates: start: 20100729, end: 20110118

REACTIONS (1)
  - DEATH [None]
